FAERS Safety Report 10273579 (Version 1)
Quarter: 2014Q2

REPORT INFORMATION
  Report Type: Spontaneous
  Country: US (occurrence: None)
  Receive Date: 20140630
  Receipt Date: 20140630
  Transmission Date: 20141212
  Serious: Yes (Other)
  Sender: FDA-Public Use
  Company Number: None

PATIENT
  Sex: Male
  Weight: 61.24 kg

DRUGS (1)
  1. BIAXIN [Suspect]
     Indication: INFLUENZA LIKE ILLNESS
     Dosage: RX FOR SEVEN DAYS
     Route: 048

REACTIONS (6)
  - Myalgia [None]
  - Gait disturbance [None]
  - Hypoaesthesia [None]
  - Balance disorder [None]
  - Similar reaction on previous exposure to drug [None]
  - Muscle rigidity [None]
